FAERS Safety Report 23874059 (Version 3)
Quarter: 2024Q2

REPORT INFORMATION
  Report Type: Report from Study
  Country: US (occurrence: US)
  Receive Date: 20240520
  Receipt Date: 20240525
  Transmission Date: 20240716
  Serious: Yes (Death)
  Sender: FDA-Public Use
  Company Number: US-ABBVIE-5766211

PATIENT
  Sex: Male

DRUGS (35)
  1. VENCLEXTA [Suspect]
     Active Substance: VENETOCLAX
     Indication: B-cell small lymphocytic lymphoma
     Dosage: FORM STRENGTH 100 MILLIGRAM, TAKE THREE TABLETS BY MOUTH AND SWALLOW DAILY WITH BREAKFAST
     Route: 048
  2. VENCLEXTA [Suspect]
     Active Substance: VENETOCLAX
     Indication: B-cell small lymphocytic lymphoma
     Dosage: SWALLOW WHOLE ONCE DAILY AS DIRECTED DURING THE FIRST AND SECOND CYCLE OF?OBINTUZUMAB?(VENCLEXTA ...
     Route: 048
  3. VENCLEXTA [Suspect]
     Active Substance: VENETOCLAX
     Indication: B-cell small lymphocytic lymphoma
     Dosage: SWALLOW WHOLE ONCE DAILY AS DIRECTED DURING THE FIRST AND SECOND CYCLE OF?OBINTUZUMAB?(VENCLEXTA ...
     Route: 048
  4. VENCLEXTA [Suspect]
     Active Substance: VENETOCLAX
     Indication: B-cell small lymphocytic lymphoma
     Dosage: SWALLOW WHOLE ONCE DAILY AS DIRECTED DURING THE FIRST AND SECOND CYCLE OF?OBINTUZUMAB?(VENCLEXTA ...
     Route: 048
  5. VENCLEXTA [Suspect]
     Active Substance: VENETOCLAX
     Indication: B-cell small lymphocytic lymphoma
     Dosage: TAKE 4 TABLETS BY MOUTH DAILY WITH BREAKFAST. SWALLOW WHOLE DAILY WITH BREAKFAST AS?DIRECTED
     Route: 048
  6. VENCLEXTA [Suspect]
     Active Substance: VENETOCLAX
     Indication: B-cell small lymphocytic lymphoma
     Dosage: TAKE 3 TABLET(S) BY MOUTH DAILY WITH BREAKFAST. SWALLOW WHOLE DAILY? WITH BREAKFAST AS DIRECTED
     Route: 048
  7. GAZYVA [Suspect]
     Active Substance: OBINUTUZUMAB
     Indication: Small cell lung cancer
     Dosage: FORM STRENGTH 100 MG, INFUSE 1000 MG EVERY 28 DAYS
     Route: 042
     Dates: start: 20240314
  8. GAZYVA [Suspect]
     Active Substance: OBINUTUZUMAB
     Indication: Small cell lung cancer
     Dosage: TAKE 3 TABLET(S) BY MOUTH DAILY WITH BREAKFAST. SWALLOW WHOLE DAILY?WITH BREAKFAST AS DIRECTED
     Route: 058
  9. GAZYVA [Suspect]
     Active Substance: OBINUTUZUMAB
     Indication: Small cell lung cancer
     Dosage: TAKE 3 TABLET(S) BY MOUTH DAILY WITH BREAKFAST. SWALLOW WHOLE DAILY? WITH BREAKFAST AS DIRECTED
     Route: 048
  10. GAZYVA [Suspect]
     Active Substance: OBINUTUZUMAB
     Indication: Small cell lung cancer
     Route: 065
  11. TYLENOL [Concomitant]
     Active Substance: ACETAMINOPHEN
     Indication: Product used for unknown indication
  12. HEPARIN SODIUM, PORCINE [Concomitant]
     Active Substance: HEPARIN SODIUM
     Indication: Product used for unknown indication
     Dosage: CONTROLLED RELEASE?FORM OF ADMIN 500 UNIT
  13. ALBUTEROL [Concomitant]
     Active Substance: ALBUTEROL
     Indication: Product used for unknown indication
     Dosage: 90 MCG/ACTUATLON INHALER?INHALE 2 PUFFS INTO THE LUNGS EVERY 4 (FOUR) HOURS AS NEEDED FOR WHEEZING
  14. ASPIRIN [Concomitant]
     Active Substance: ASPIRIN
     Indication: Product used for unknown indication
     Dosage: TAKE 1 TABLET MOUTH DAILY
     Route: 048
  15. BUDESONIDE\FORMOTEROL [Concomitant]
     Active Substance: BUDESONIDE\FORMOTEROL
     Indication: Product used for unknown indication
     Dosage: 160-4.5 MC ACTUATION HFA AEROSOL INHALE?INHALE 2 PUFFS INTO THE LUNGS EVERY 12 (TWELVE) HOURS
  16. LIDOCAINE\PRILOCAINE [Concomitant]
     Active Substance: LIDOCAINE\PRILOCAINE
     Indication: Product used for unknown indication
     Dosage: CREAM?APPLY 1 APPLICATION TOPICALLY IF NEEDED (APPLY TO PORT BUMP 1 HOUR PRIORTO INFUSION,? COVER...
     Route: 061
  17. LISINOPRIL [Concomitant]
     Active Substance: LISINOPRIL
     Indication: Product used for unknown indication
     Dosage: TAKE I TABLET BY MOUTH DAILY
     Route: 048
  18. NALOXONE [Concomitant]
     Active Substance: NALOXONE
     Indication: Product used for unknown indication
     Dosage: 4 MG/ACTUATION?1 EACH BY INTRANASAL ROUTE IF NEEDED FOR UP TO 1 DOSE. MAY REPEAT EVERY 2 TO 3? MI...
  19. Aluminium hydroxide;Diphenhydramine;Lidocaine;Magnesium hydroxide;S... [Concomitant]
     Indication: Product used for unknown indication
     Dosage: 25-200- 400-40 MG/30ML MOUTHWASH?SWISH AND SPIT 5-10 MLS IF NEEDED
  20. CYANOCOBALAMIN [Concomitant]
     Active Substance: CYANOCOBALAMIN
     Indication: Product used for unknown indication
     Dosage: 1,000 MCG TABLET?TAKE 1 TABLET BY MOUTH DAILY
     Route: 048
  21. DEXAMETHASONE [Concomitant]
     Active Substance: DEXAMETHASONE
     Indication: Product used for unknown indication
     Dosage: STARTING WITH YOUR FIFTH CYCLE TAKE 4 MG 2X/DAY ON THE DAY BEFORE, THE DAY OF AND THE DAY AFTER Y...
     Route: 048
  22. FOLIC ACID [Concomitant]
     Active Substance: FOLIC ACID
     Indication: Product used for unknown indication
     Dosage: TAKE 1 TABLET BY MOUTH DAILY
     Route: 048
  23. LASIX [Concomitant]
     Active Substance: FUROSEMIDE
     Indication: Product used for unknown indication
     Dosage: TAKE 1 TABLET BY MOUTH DAILY
     Route: 048
  24. HYDROCODONE [Concomitant]
     Active Substance: HYDROCODONE
     Indication: Product used for unknown indication
     Dosage: 10-325 MG PER TABLET?TAKE 1-2 TABLETS BY MOUTH EVERY 4 (FOUR) HOURS AS NEEDED. MAX 7 TABS PER DA
     Route: 048
  25. ALBUTEROL\IPRATROPIUM [Concomitant]
     Active Substance: ALBUTEROL\IPRATROPIUM
     Indication: Product used for unknown indication
     Dosage: 0.5 MG-3 MG (2.5 MG BASE)/3 ML NEBULIZER SOLUTION?TAKE 3 MLS BY NEBULIZATION EVERY 4 (FOUR) HOURS...
     Route: 048
  26. ONDANSETRON [Concomitant]
     Active Substance: ONDANSETRON
     Indication: Vomiting
     Dosage: DISINTEGRATING TABLET?TAKE 1 TABLET BY MOUTH EVETY 8 (EIGHT) HOURS AS NEEDED (NAUSEA AND/OR VOMIT...
     Route: 048
  27. PANTOPRAZOLE [Concomitant]
     Active Substance: PANTOPRAZOLE
     Indication: Product used for unknown indication
     Dosage: TAKE 1 TABLET BY MOUTH EVERY MORNING 1 HR BEFORE BREAKFAST.
     Route: 048
  28. PROCHLORPERAZINE [Concomitant]
     Active Substance: PROCHLORPERAZINE
     Indication: Nausea
     Dosage: TAKE 1 TABLET BY MOUTH EVERY 6 (SIX) HOURS AS NEEDED (NAUSEA AND/OR VOMITING)
     Route: 048
  29. TIOTROPIUM BROMIDE [Concomitant]
     Active Substance: TIOTROPIUM BROMIDE
     Indication: Product used for unknown indication
     Dosage: 2.5 MCG/ACTUATION MIST?INHALE 2 PUFFS INTO THE LUNGS ONCE DAILY
  30. ZANUBRUTINIB [Concomitant]
     Active Substance: ZANUBRUTINIB
     Indication: Product used for unknown indication
     Dosage: TAKE 2 CAPSULES (160 MG) BY MOUTH 2 (TWO) TIMES DAILY,?80MG
     Route: 048
  31. BENADRYL [Concomitant]
     Active Substance: DIPHENHYDRAMINE HYDROCHLORIDE
     Indication: Product used for unknown indication
  32. SODIUM CHLORIDE [Concomitant]
     Active Substance: SODIUM CHLORIDE
     Indication: Product used for unknown indication
     Dosage: 0.9 % INFUSION
  33. SODIUM CHLORIDE [Concomitant]
     Active Substance: SODIUM CHLORIDE
     Indication: Product used for unknown indication
     Dosage: FLUSH SYRINGE
  34. DIPHENHYDRAMINE;LIDOCAINE [Concomitant]
     Indication: Product used for unknown indication
     Dosage: 25-200- 400-40 MG/30ML MOUTHWASH SWISH AND SPIT 5-10 MLS IF NEEDED.?LIDOCAINE-DIPHENHYD-AL-MAG-SIM
  35. ACETAMINOPHEN [Concomitant]
     Active Substance: ACETAMINOPHEN
     Indication: Product used for unknown indication
     Dosage: 10-325 MG PER TABLET /TAKE 1-2 TABLETS BY MOUTH EVERY 4 (FOUR) HOURS AS NEEDED. MAX 7 TABS PER DA
     Route: 048

REACTIONS (2)
  - Lung neoplasm malignant [Fatal]
  - Off label use [Unknown]
